FAERS Safety Report 23830399 (Version 1)
Quarter: 2024Q2

REPORT INFORMATION
  Report Type: Spontaneous
  Country: CA (occurrence: CA)
  Receive Date: 20240508
  Receipt Date: 20240508
  Transmission Date: 20240716
  Serious: Yes (Hospitalization)
  Sender: FDA-Public Use
  Company Number: CA-AMERICAN REGENT INC-2024001731

PATIENT
  Age: 44 Year
  Sex: Female

DRUGS (2)
  1. VENOFER [Suspect]
     Active Substance: IRON SUCROSE
     Indication: Blood iron abnormal
     Dosage: 1 DOSAGE FORMS, ONCE
     Route: 042
  2. CAFFEINE [Concomitant]
     Active Substance: CAFFEINE
     Indication: Product used for unknown indication
     Dosage: UNK
     Route: 065

REACTIONS (7)
  - Pain [Unknown]
  - Pallor [Unknown]
  - Chills [Unknown]
  - Tremor [Unknown]
  - Asthenia [Unknown]
  - Blood pressure decreased [Unknown]
  - Vomiting [Unknown]
